FAERS Safety Report 4728074-9 (Version None)
Quarter: 2005Q3

REPORT INFORMATION
  Report Type: 
  Country: None (occurrence: None)
  Receive Date: 20050729
  Receipt Date: 20050719
  Transmission Date: 20060218
  Serious: Yes (Other)
  Sender: FDA-Public Use
  Company Number: PHEH2005US08026

PATIENT
  Age: 60 Year
  Sex: Male

DRUGS (6)
  1. ZOMETA [Suspect]
     Indication: PHAEOCHROMOCYTOMA
     Dosage: 4 MG EVERY 3 WEEKS
     Dates: start: 20040304
  2. OXYCONTIN [Concomitant]
  3. OXYCODONE HCL [Concomitant]
  4. ARANESP [Concomitant]
  5. OCTREOTIDE ACETATE [Concomitant]
  6. AVASTIN [Concomitant]

REACTIONS (2)
  - ASEPTIC NECROSIS BONE [None]
  - PAIN IN JAW [None]
